FAERS Safety Report 18908411 (Version 2)
Quarter: 2021Q3

REPORT INFORMATION
  Report Type: Report from Study
  Country: JP (occurrence: JP)
  Receive Date: 20210218
  Receipt Date: 20210923
  Transmission Date: 20211014
  Serious: Yes (Other)
  Sender: FDA-Public Use
  Company Number: JP-AMGEN-JPNCT2021024998

PATIENT
  Age: 77 Year
  Sex: Female

DRUGS (40)
  1. FEXOFENADINE HYDROCHLORIDE. [Concomitant]
     Active Substance: FEXOFENADINE HYDROCHLORIDE
     Indication: MYELODYSPLASTIC SYNDROME
     Dosage: 60 MILLIGRAM
     Route: 048
  2. JADENU [Concomitant]
     Active Substance: DEFERASIROX
     Indication: IRON OVERLOAD
     Dosage: 270 MG, QD, IMMEDIATELY AFTER DINNER
     Route: 048
  3. WARFARIN [WARFARIN POTASSIUM] [Concomitant]
     Active Substance: WARFARIN POTASSIUM
     Dosage: 1.5 MG
     Route: 048
     Dates: start: 20180806, end: 20180917
  4. CALONAL [Concomitant]
     Active Substance: ACETAMINOPHEN
     Dosage: 600 MG, QID, IMMEDIATELY AFTER EACH MEAL, BEFORE BEDTIME
     Route: 048
     Dates: start: 20181009
  5. DARBEPOETIN ALFA [Suspect]
     Active Substance: DARBEPOETIN ALFA
     Dosage: 240 MILLIGRAM, Q2WK
     Route: 058
     Dates: start: 20181211, end: 20191224
  6. SAMSCA [Concomitant]
     Active Substance: TOLVAPTAN
     Indication: CARDIAC FAILURE
     Dosage: 7.5 MG, QD, IMMEDIATELY AFTER BREAKFAST
     Route: 048
  7. WARFARIN [WARFARIN POTASSIUM] [Concomitant]
     Active Substance: WARFARIN POTASSIUM
     Indication: CARDIAC FAILURE
     Dosage: 1.5 MG
     Route: 048
     Dates: end: 20180326
  8. LOXOPROFEN NA [Concomitant]
     Active Substance: LOXOPROFEN SODIUM
     Indication: CARDIAC FAILURE
     Dosage: 60 MILLIGRAM
     Route: 048
     Dates: start: 20180702, end: 20180702
  9. DARBEPOETIN ALFA [Suspect]
     Active Substance: DARBEPOETIN ALFA
     Indication: MYELODYSPLASTIC SYNDROME
     Dosage: 120 MILLIGRAM
     Route: 058
     Dates: start: 20180731, end: 20180731
  10. FOLIAMIN [FOLIC ACID] [Concomitant]
     Active Substance: FOLIC ACID
     Indication: MYELODYSPLASTIC SYNDROME
     Dosage: 5 MG
     Route: 048
     Dates: end: 20180604
  11. DARBEPOETIN ALFA [Suspect]
     Active Substance: DARBEPOETIN ALFA
     Dosage: 30 MILLIGRAM, Q2WK
     Route: 058
     Dates: start: 20180327, end: 20180424
  12. DARBEPOETIN ALFA [Suspect]
     Active Substance: DARBEPOETIN ALFA
     Dosage: 60 MILLIGRAM, Q2WK
     Route: 058
     Dates: start: 20180703, end: 20180717
  13. DARBEPOETIN ALFA [Suspect]
     Active Substance: DARBEPOETIN ALFA
     Dosage: 240 MILLIGRAM, QWK
     Route: 058
     Dates: start: 20200107
  14. FUROSEMIDE. [Concomitant]
     Active Substance: FUROSEMIDE
     Indication: CARDIAC FAILURE
     Dosage: 40 MG, QD, IMMEDIATELY AFTER BREAKFAST
     Route: 048
  15. ROZEREM [Concomitant]
     Active Substance: RAMELTEON
     Dosage: 8 MG, QD, BEFORE BEDTIME
     Route: 048
  16. ARTIST [Concomitant]
     Active Substance: CARVEDILOL
     Indication: CARDIAC FAILURE
     Dosage: 2.5 MG, QD, IMMEDIATELY AFTER BREAKFAST
     Route: 048
     Dates: start: 20180717
  17. DOMPERIDONE [Concomitant]
     Active Substance: DOMPERIDONE
     Indication: SPINAL COMPRESSION FRACTURE
     Dosage: 10 MG, QD, IMMEDIATELY AFTER BREAKFAST
     Route: 048
  18. CELECOX [Concomitant]
     Active Substance: CELECOXIB
     Dosage: UNK
  19. DARBEPOETIN ALFA [Suspect]
     Active Substance: DARBEPOETIN ALFA
     Dosage: 240 MILLIGRAM, Q2WK
     Route: 058
     Dates: start: 20181120, end: 20181204
  20. MAINTATE [Concomitant]
     Active Substance: BISOPROLOL FUMARATE
     Indication: CARDIAC FAILURE
     Dosage: 2.5 MILLIGRAM
     Route: 048
     Dates: end: 20180717
  21. TAKECAB [Concomitant]
     Active Substance: VONOPRAZAN FUMARATE
     Indication: MYELODYSPLASTIC SYNDROME
     Dosage: 10 MG, QD, IMMEDIATELY AFTER DINNER
     Route: 048
  22. LEVOFLOXACIN HEMIHYDRATE [Concomitant]
     Active Substance: LEVOFLOXACIN
     Indication: MYELODYSPLASTIC SYNDROME
     Dosage: 250 MILLIGRAM
     Route: 048
     Dates: end: 20180329
  23. WARFARIN [WARFARIN POTASSIUM] [Concomitant]
     Active Substance: WARFARIN POTASSIUM
     Dosage: 2 MG
     Route: 048
     Dates: start: 20190620, end: 20190621
  24. BISONO [Concomitant]
     Active Substance: BISOPROLOL
     Indication: CARDIAC FAILURE
     Dosage: 2 MG
     Dates: start: 20190627, end: 20190628
  25. JADENU [Concomitant]
     Active Substance: DEFERASIROX
     Indication: MYELODYSPLASTIC SYNDROME
     Dosage: 540 MG
     Route: 048
  26. BONALON [Concomitant]
     Active Substance: ALENDRONATE SODIUM
     Dosage: 35 MG, QD, WHEN WAKING UP
     Route: 048
  27. WARFARIN [WARFARIN POTASSIUM] [Concomitant]
     Active Substance: WARFARIN POTASSIUM
     Dosage: 2.5 MG
     Route: 048
     Dates: start: 20180625, end: 20180627
  28. WARFARIN [WARFARIN POTASSIUM] [Concomitant]
     Active Substance: WARFARIN POTASSIUM
     Dosage: 3 MG
     Route: 048
     Dates: start: 20190622, end: 20190624
  29. CYMBALTA [Concomitant]
     Active Substance: DULOXETINE HYDROCHLORIDE
     Indication: SPINAL COMPRESSION FRACTURE
     Dosage: 40 MG, QD, IMMEDIATELY AFTER BREAKFAST
     Route: 048
  30. DOMPERIDONE [Concomitant]
     Active Substance: DOMPERIDONE
     Dosage: UNK
  31. DARBEPOETIN ALFA [Suspect]
     Active Substance: DARBEPOETIN ALFA
     Dosage: 60 MILLIGRAM, Q2WK
     Route: 058
     Dates: start: 20180508, end: 20180605
  32. WARFARIN [WARFARIN POTASSIUM] [Concomitant]
     Active Substance: WARFARIN POTASSIUM
     Dosage: 2 MG
     Route: 048
     Dates: start: 20190628, end: 20190806
  33. RIFADIN [Concomitant]
     Active Substance: RIFAMPIN
     Indication: CARDIAC FAILURE
     Dosage: 450 MILLIGRAM
     Route: 048
     Dates: start: 20180605, end: 20180615
  34. MINOCYCLINE HYDROCHLORIDE. [Concomitant]
     Active Substance: MINOCYCLINE HYDROCHLORIDE
     Indication: CARDIAC FAILURE
     Dosage: 100 MG, BID, IMMEDIATELY AFTER BREAKFAST AND DINNER
     Route: 048
     Dates: start: 20180820
  35. DARBEPOETIN ALFA [Suspect]
     Active Substance: DARBEPOETIN ALFA
     Dosage: 120 MILLIGRAM, Q2WK
     Route: 058
     Dates: start: 20180913, end: 20181106
  36. WARFARIN [WARFARIN POTASSIUM] [Concomitant]
     Active Substance: WARFARIN POTASSIUM
     Dosage: 3 MG
     Route: 048
     Dates: start: 20180627, end: 20180628
  37. FEBURIC [Concomitant]
     Active Substance: FEBUXOSTAT
     Dosage: 20 MG, QD, IMMEDIATELY AFTER BREAKFAST
     Route: 048
     Dates: start: 20190410
  38. SELARA [Concomitant]
     Active Substance: EPLERENONE
     Indication: CARDIAC FAILURE
     Dosage: 50 MG, QD, IMMEDIATELY AFTER BREAKFAST
     Route: 048
     Dates: start: 20190620
  39. CYMBALTA [Concomitant]
     Active Substance: DULOXETINE HYDROCHLORIDE
     Dosage: UNK
  40. CELECOX [Concomitant]
     Active Substance: CELECOXIB
     Indication: SPINAL COMPRESSION FRACTURE
     Dosage: 100 MG, QD, IMMEDIATELY AFTER LUNCH
     Route: 048

REACTIONS (2)
  - Spinal compression fracture [Not Recovered/Not Resolved]
  - Iron overload [Not Recovered/Not Resolved]

NARRATIVE: CASE EVENT DATE: 201809
